FAERS Safety Report 10159065 (Version 1)
Quarter: 2014Q2

REPORT INFORMATION
  Report Type: Spontaneous
  Country: GB (occurrence: GB)
  Receive Date: 20140508
  Receipt Date: 20140508
  Transmission Date: 20141212
  Serious: Yes (Hospitalization, Disabling)
  Sender: FDA-Public Use
  Company Number: GB-DRREDDYS-GER/UKI/14/0040061

PATIENT
  Age: 43 Year
  Sex: Female

DRUGS (5)
  1. TIZANIDINE [Suspect]
     Indication: MUSCLE SPASTICITY
     Route: 048
     Dates: start: 20140404, end: 20140410
  2. BACLOFEN [Concomitant]
     Indication: PRODUCT USED FOR UNKNOWN INDICATION
     Route: 048
  3. CITALOPRAM [Concomitant]
     Indication: PRODUCT USED FOR UNKNOWN INDICATION
     Route: 048
  4. CLONAZEPAM [Concomitant]
     Indication: PRODUCT USED FOR UNKNOWN INDICATION
     Route: 048
  5. SODIUM VALPROATE [Concomitant]
     Indication: PRODUCT USED FOR UNKNOWN INDICATION
     Route: 048

REACTIONS (4)
  - Cholecystitis [Recovered/Resolved]
  - Confusional state [Recovered/Resolved]
  - Dysphonia [Recovered/Resolved]
  - Unresponsive to stimuli [Recovered/Resolved]
